FAERS Safety Report 9376353 (Version 2)
Quarter: 2013Q3

REPORT INFORMATION
  Report Type: Spontaneous
  Country: US (occurrence: US)
  Receive Date: 20130701
  Receipt Date: 20130912
  Transmission Date: 20140515
  Serious: No
  Sender: FDA-Public Use
  Company Number: US-B.I. PHARMACEUTICALS,INC./RIDGEFIELD-2013-BI-18150BP

PATIENT
  Age: 77 Year
  Sex: Male
  Weight: 95 kg

DRUGS (8)
  1. SPIRIVA [Suspect]
     Indication: CHRONIC OBSTRUCTIVE PULMONARY DISEASE
     Dosage: 18 MG
     Route: 055
     Dates: start: 201210
  2. COMBIVENT [Suspect]
     Indication: CHRONIC OBSTRUCTIVE PULMONARY DISEASE
     Dosage: STRENGTH: 18 MCG / 103 MCG
     Route: 055
     Dates: start: 201305
  3. SIMVASTATIN [Concomitant]
     Dosage: 20 MG
     Route: 048
  4. FAMOTIDINE [Concomitant]
     Dosage: 20 MG
     Route: 048
  5. DONEPEZIL [Concomitant]
     Dosage: 10 MG
     Route: 048
  6. ATENOLOL [Concomitant]
     Dosage: 12.5 MG
     Route: 048
  7. CITALOPRAM [Concomitant]
     Dosage: 80 MG
     Route: 048
  8. CLOPIDOGREL [Concomitant]
     Dosage: 75 MG
     Route: 048

REACTIONS (3)
  - Dyspnoea [Not Recovered/Not Resolved]
  - Dyspnoea [Not Recovered/Not Resolved]
  - Product quality issue [Recovered/Resolved]
